FAERS Safety Report 6465175-1 (Version None)
Quarter: 2009Q4

REPORT INFORMATION
  Report Type: 
  Country: None (occurrence: None)
  Receive Date: 20091201
  Receipt Date: 20091120
  Transmission Date: 20100525
  Serious: Yes (Death, Hospitalization, Other)
  Sender: FDA-Public Use
  Company Number: JP-WYE-H12387709

PATIENT
  Age: 70 Year
  Sex: Female

DRUGS (4)
  1. ANCARON [Suspect]
     Indication: VENTRICULAR TACHYCARDIA
     Dosage: 400 MG FROM 30-JAN-2008 TO UNKNOWN; THEN 300 MG UNTIL 13-APR-2009
  2. ANCARON [Suspect]
     Dosage: 200 MG FROM 14-APR-2009 TO 22-APR-2009; THEN 100 MG FROM 23-APR-2009 TO 13-MAY-2009
  3. ANCARON [Suspect]
     Dosage: UNSPECIFIED DOSE FROM 13-MAY-2009 TO UNKNOWN
  4. WARFARIN SODIUM [Concomitant]
     Dosage: UNSPECIFIED
     Dates: start: 20080101, end: 20080824

REACTIONS (9)
  - ASTHMA [None]
  - ATRIAL FIBRILLATION [None]
  - CARDIAC ARREST [None]
  - CARDIAC FAILURE [None]
  - CEREBRAL INFARCTION [None]
  - DRUG EFFECT DECREASED [None]
  - HEPATITIS FULMINANT [None]
  - MULTI-ORGAN FAILURE [None]
  - UPPER RESPIRATORY TRACT INFLAMMATION [None]
